FAERS Safety Report 9702693 (Version 3)
Quarter: 2014Q2

REPORT INFORMATION
  Report Type: Spontaneous
  Country: US (occurrence: US)
  Receive Date: 20131121
  Receipt Date: 20140515
  Transmission Date: 20141212
  Serious: Yes (Other)
  Sender: FDA-Public Use
  Company Number: US-GLAXOSMITHKLINE-A1049864A

PATIENT
  Sex: Female
  Weight: 68.2 kg

DRUGS (2)
  1. BENLYSTA [Suspect]
     Indication: SYSTEMIC LUPUS ERYTHEMATOSUS
     Dosage: 682MG MONTHLY
     Route: 042
     Dates: start: 20121207
  2. UNKNOWN [Concomitant]

REACTIONS (6)
  - Suicidal ideation [Recovering/Resolving]
  - Depression [Recovering/Resolving]
  - Adverse event [Recovering/Resolving]
  - Stress [Unknown]
  - Family stress [Unknown]
  - Partner stress [Unknown]
